FAERS Safety Report 17843387 (Version 1)
Quarter: 2020Q2

REPORT INFORMATION
  Report Type: Spontaneous
  Country: US (occurrence: US)
  Receive Date: 20200530
  Receipt Date: 20200530
  Transmission Date: 20200714
  Serious: Yes (Life-Threatening, Hospitalization, Other)
  Sender: FDA-Public Use
  Company Number: US-MACLEODS PHARMACEUTICALS US LTD-MAC2020026624

PATIENT

DRUGS (26)
  1. CHLORPROMAZINE. [Interacting]
     Active Substance: CHLORPROMAZINE
     Dosage: 50 MILLIGRAM, QD, TWO ROUNDS ON DAY 2
     Route: 030
  2. OSELTAMIVIR [Concomitant]
     Active Substance: OSELTAMIVIR
     Indication: INFLUENZA
     Dosage: UNK
     Route: 065
  3. OLANZAPINE. [Suspect]
     Active Substance: OLANZAPINE
     Indication: BIPOLAR DISORDER
     Dosage: 5 MILLIGRAM, QID, ON DAY 1 AS AN WHEN NECESSARY (PRN)
     Route: 065
  4. VALPROIC ACID. [Interacting]
     Active Substance: VALPROIC ACID
     Indication: MOOD SWINGS
     Dosage: 1000 MILLIGRAM, QD, EVERY NIGHT AT BEDTIME (QHS)
     Route: 048
  5. CHLORPROMAZINE. [Interacting]
     Active Substance: CHLORPROMAZINE
     Indication: AGITATION
     Dosage: 100 MILLIGRAM, ON DAY 4 THE DOSE WAS AGAIN CHANGED TO 100 MG PO/IM
     Route: 030
  6. CHLORPROMAZINE. [Interacting]
     Active Substance: CHLORPROMAZINE
     Dosage: 100 MILLIGRAM, ON DAY 4
     Route: 030
  7. CHLORPROMAZINE. [Interacting]
     Active Substance: CHLORPROMAZINE
     Dosage: 100 MILLIGRAM, ON DAY 4 THE DOSE WAS AGAIN CHANGED TO 100 MG PO/IM
     Route: 048
  8. LORAZEPAM. [Suspect]
     Active Substance: LORAZEPAM
     Dosage: 2 MILLIGRAM, TWO ROUNDS ON DAY 2 AND DAY 3
     Route: 030
  9. LORAZEPAM. [Suspect]
     Active Substance: LORAZEPAM
     Dosage: 1 MILLIGRAM, ORAL / INTRAMUSCULAR ON DAY 3
     Route: 030
  10. CHLORPROMAZINE. [Interacting]
     Active Substance: CHLORPROMAZINE
     Dosage: 100 MILLIGRAM, ORAL / INTRAMUSCULAR ON DAY 3
     Route: 030
  11. CHLORPROMAZINE. [Interacting]
     Active Substance: CHLORPROMAZINE
     Dosage: 200 MILLIGRAM, TID, ON DAY 4 THE DOSE WAS CHANGED TO PO 200 MG Q8H.
     Route: 048
  12. LORAZEPAM. [Suspect]
     Active Substance: LORAZEPAM
     Dosage: 1 MILLIGRAM, ORAL / INTRAMUSCULAR ON DAY 3
     Route: 048
  13. LORAZEPAM. [Suspect]
     Active Substance: LORAZEPAM
     Dosage: 1 MILLIGRAM, TID, ON DAY 4 THE DOSE WAS CHANGED TO Q8H
     Route: 048
  14. CLONAZEPAM. [Suspect]
     Active Substance: CLONAZEPAM
     Indication: BIPOLAR DISORDER
     Dosage: 0.5 MILLIGRAM, BID
     Route: 048
  15. CLONAZEPAM. [Suspect]
     Active Substance: CLONAZEPAM
     Dosage: 1 MILLIGRAM, BID, ON DAY 2 DOSE INCREASED TO 1 MG PO
     Route: 048
  16. LORAZEPAM. [Suspect]
     Active Substance: LORAZEPAM
     Dosage: 1 MILLIGRAM, TID, ORAL / INTRAMUSCULAR ON DAY 4
     Route: 030
  17. OLANZAPINE. [Suspect]
     Active Substance: OLANZAPINE
     Dosage: 15 MILLIGRAM, BID, ON DAY 2 DOSE WAS INCREASED
     Route: 048
  18. CHLORPROMAZINE. [Interacting]
     Active Substance: CHLORPROMAZINE
     Dosage: 100 MILLIGRAM, ORAL / INTRAMUSCULAR ON DAY 3
     Route: 048
  19. OLANZAPINE. [Suspect]
     Active Substance: OLANZAPINE
     Dosage: 5 MILLIGRAM, QD, ON DAY 2 TWO ROUNDS
     Route: 048
  20. HALOPERIDOL 5 MG [Suspect]
     Active Substance: HALOPERIDOL
     Indication: BIPOLAR DISORDER
     Dosage: 5 MILLIGRAM, TWO ROUNDS ON DAY 2 AND DAY 3
     Route: 065
  21. VALPROIC ACID. [Interacting]
     Active Substance: VALPROIC ACID
     Dosage: 500 MILLIGRAM, QD, EVERY MORNING (QAM)
     Route: 048
  22. ZYPREXA [Suspect]
     Active Substance: OLANZAPINE
     Indication: BIPOLAR DISORDER
     Dosage: 5 MILLIGRAM, BID, AS NECESSARY AT DAY 4
     Route: 065
  23. DIPHENHYDRAMINE. [Suspect]
     Active Substance: DIPHENHYDRAMINE
     Indication: BIPOLAR DISORDER
     Dosage: 50 MILLIGRAM, TWO ROUNDS ON DAY 2 AND DAY 3
     Route: 030
  24. LORAZEPAM. [Suspect]
     Active Substance: LORAZEPAM
     Indication: PRODUCT USED FOR UNKNOWN INDICATION
     Dosage: 1 MILLIGRAM, ON DAY 4
     Route: 030
  25. LORAZEPAM. [Suspect]
     Active Substance: LORAZEPAM
     Dosage: 1 MILLIGRAM, ORAL / INTRAMUSCULAR ON DAY 4
     Route: 048
  26. OLANZAPINE. [Suspect]
     Active Substance: OLANZAPINE
     Dosage: 10 MILLIGRAM, BID, ON DAY 1
     Route: 065

REACTIONS (10)
  - Deep vein thrombosis [Recovered/Resolved]
  - Somnolence [Unknown]
  - Pneumonia [Unknown]
  - Respiratory distress [Recovered/Resolved]
  - Dysarthria [Unknown]
  - Respiratory failure [Recovered/Resolved]
  - Chronic obstructive pulmonary disease [Recovered/Resolved]
  - Hypercapnia [Recovered/Resolved]
  - Pulmonary embolism [Recovered/Resolved]
  - Drug interaction [Unknown]
